FAERS Safety Report 20738308 (Version 1)
Quarter: 2022Q2

REPORT INFORMATION
  Report Type: Spontaneous
  Country: US (occurrence: US)
  Receive Date: 20220422
  Receipt Date: 20220422
  Transmission Date: 20220720
  Serious: Yes (Other)
  Sender: FDA-Public Use
  Company Number: US-SUN PHARMACEUTICAL INDUSTRIES LTD-2022R1-333769

PATIENT
  Sex: Male

DRUGS (1)
  1. YONSA [Suspect]
     Active Substance: ABIRATERONE ACETATE
     Indication: Product used for unknown indication
     Dosage: UNK, 4 TABLETS BY MOUTH DAILY
     Route: 048
     Dates: start: 20220314

REACTIONS (3)
  - Drug ineffective [Unknown]
  - Prostatic specific antigen decreased [Unknown]
  - Therapy cessation [Unknown]
